FAERS Safety Report 9223632 (Version 5)
Quarter: 2013Q2

REPORT INFORMATION
  Report Type: Spontaneous
  Country: JP (occurrence: JP)
  Receive Date: 20130410
  Receipt Date: 20130618
  Transmission Date: 20140414
  Serious: Yes (Hospitalization)
  Sender: FDA-Public Use
  Company Number: JP-GLAXOSMITHKLINE-B0881228A

PATIENT
  Age: 31 Year
  Sex: Female

DRUGS (10)
  1. LAMICTAL [Suspect]
     Indication: AFFECT LABILITY
     Dosage: 75MG TWICE PER DAY
     Route: 048
     Dates: start: 20120117
  2. LAMICTAL [Suspect]
     Indication: AFFECT LABILITY
     Route: 048
  3. PAXIL [Suspect]
     Indication: AUTONOMIC NERVOUS SYSTEM IMBALANCE
     Route: 048
     Dates: start: 200704
  4. VEGETAMIN-B [Concomitant]
     Indication: INSOMNIA
     Dosage: 1IUAX PER DAY
     Route: 048
  5. ROHYPNOL [Concomitant]
     Route: 065
  6. SOLANAX [Concomitant]
     Indication: ANXIETY
     Dosage: .8MG THREE TIMES PER DAY
     Route: 048
  7. PHENOBAL [Concomitant]
     Route: 048
  8. FLUNITRAZEPAM [Concomitant]
     Indication: INSOMNIA
     Dosage: 2MG PER DAY
     Route: 048
  9. JZOLOFT [Concomitant]
     Indication: DEPRESSION
     Dosage: 100MG PER DAY
     Route: 048
  10. LIMAS [Concomitant]
     Indication: AFFECT LABILITY
     Dosage: 200MG TWICE PER DAY
     Route: 048

REACTIONS (7)
  - Coma [Recovered/Resolved]
  - Suicidal ideation [Unknown]
  - Depression [Unknown]
  - Insomnia [Unknown]
  - Stress [Unknown]
  - Affect lability [Unknown]
  - Overdose [Unknown]
